FAERS Safety Report 9412039 (Version 2)
Quarter: 2013Q3

REPORT INFORMATION
  Report Type: Spontaneous
  Country: CA (occurrence: CA)
  Receive Date: 20130722
  Receipt Date: 20130913
  Transmission Date: 20140515
  Serious: Yes (Other)
  Sender: FDA-Public Use
  Company Number: CA-JNJFOC-20130708321

PATIENT
  Age: 8 Week
  Sex: 0

DRUGS (15)
  1. DARUNAVIR [Suspect]
     Indication: HIV INFECTION
     Route: 064
  2. ETRAVIRINE [Suspect]
     Indication: HIV INFECTION
     Route: 064
  3. RALTEGRAVIR [Suspect]
     Indication: HIV INFECTION
     Route: 064
  4. LAMIVUDINE [Suspect]
     Indication: HIV INFECTION
     Route: 064
  5. ZIDOVUDINE [Suspect]
     Indication: HIV INFECTION
     Route: 064
  6. ABACAVIR [Suspect]
     Indication: HIV INFECTION
     Route: 064
  7. RITONAVIR [Suspect]
     Indication: HIV INFECTION
     Route: 064
  8. SULFAMETHOXAZOLE/TRIMETHOPRIM [Suspect]
     Indication: HIV INFECTION
     Route: 064
  9. ACYCLOVIR [Suspect]
     Indication: HIV INFECTION
     Route: 064
  10. AZITHROMYCIN [Suspect]
     Indication: HIV INFECTION
     Route: 064
  11. TENOFOVIR [Suspect]
     Indication: HIV INFECTION
     Route: 064
  12. FOLIC ACID [Concomitant]
     Route: 064
  13. IRON [Concomitant]
     Route: 064
  14. MAGNESIUM GLUCONATE [Concomitant]
     Route: 064
  15. PRENATAL  VITAMINS [Concomitant]
     Route: 064

REACTIONS (2)
  - Anaemia [Unknown]
  - Foetal exposure during pregnancy [Recovered/Resolved]
